FAERS Safety Report 4431079-9 (Version None)
Quarter: 2004Q3

REPORT INFORMATION
  Report Type: 
  Country: None (occurrence: None)
  Receive Date: 20040817
  Receipt Date: 20040802
  Transmission Date: 20050211
  Serious: Yes (Death)
  Sender: FDA-Public Use
  Company Number: 2003GB02479

PATIENT
  Age: 49 Year
  Sex: Female
  Weight: 53.98 kg

DRUGS (3)
  1. OMEPRAZOLE [Suspect]
     Indication: DYSPEPSIA
     Dosage: 20 MG PO
     Route: 048
     Dates: start: 20030804
  2. ROFECOXIB [Suspect]
     Indication: BACK PAIN
     Dosage: 50MG PO
     Route: 048
     Dates: start: 20030804
  3. CLIMAGEST [Concomitant]

REACTIONS (7)
  - CARDIAC FAILURE ACUTE [None]
  - CORONARY ARTERY ATHEROSCLEROSIS [None]
  - CORONARY ARTERY OCCLUSION [None]
  - CORONARY ARTERY STENOSIS [None]
  - MYOCARDIAL ISCHAEMIA [None]
  - PULMONARY OEDEMA [None]
  - SUDDEN DEATH [None]
